FAERS Safety Report 13301826 (Version 2)
Quarter: 2017Q2

REPORT INFORMATION
  Report Type: Spontaneous
  Country: US (occurrence: US)
  Receive Date: 20170307
  Receipt Date: 20170406
  Transmission Date: 20170830
  Serious: No
  Sender: FDA-Public Use
  Company Number: US-PFIZER INC-2017095331

PATIENT
  Age: 92 Year
  Sex: Female

DRUGS (7)
  1. FLECTOR [Suspect]
     Active Substance: DICLOFENAC EPOLAMINE
     Indication: MUSCLE STRAIN
     Dosage: UNK, 2X/DAY (FLECTOR PATCH 1.3% BID FOR LESS THAN A WEEK)
     Route: 062
  2. FLECTOR [Suspect]
     Active Substance: DICLOFENAC EPOLAMINE
     Indication: MUSCLE STRAIN
     Dosage: 2X/DAY, APPLY PATCH TO AFFECTED AREA TWICE DAILY X 30 D
     Route: 062
     Dates: start: 20170210, end: 20170227
  3. ATORVASTATIN [Concomitant]
     Active Substance: ATORVASTATIN
     Dosage: UNK
  4. ATENOLOL. [Concomitant]
     Active Substance: ATENOLOL
     Dosage: UNK
  5. AMLODIPINE [Concomitant]
     Active Substance: AMLODIPINE BESYLATE
     Dosage: UNK
  6. LOSARTAN. [Concomitant]
     Active Substance: LOSARTAN
     Dosage: UNK
  7. OMEPRAZOLE. [Concomitant]
     Active Substance: OMEPRAZOLE
     Dosage: UNK

REACTIONS (2)
  - Application site rash [Recovered/Resolved]
  - Application site dermatitis [Recovered/Resolved]

NARRATIVE: CASE EVENT DATE: 20170227
